FAERS Safety Report 9689239 (Version 1)
Quarter: 2013Q4

REPORT INFORMATION
  Report Type: Spontaneous
  Country: DE (occurrence: JP)
  Receive Date: 20131114
  Receipt Date: 20131114
  Transmission Date: 20140711
  Serious: Yes (Hospitalization)
  Sender: FDA-Public Use
  Company Number: JP-FRI-1000051352

PATIENT
  Sex: Male

DRUGS (4)
  1. MEMANTINE [Suspect]
     Dosage: 5 MG
     Dates: start: 20130430, end: 2013
  2. MEMANTINE [Suspect]
     Dosage: 10 MG
     Dates: start: 2013, end: 2013
  3. MEMANTINE [Suspect]
     Dosage: 15 MG
     Dates: start: 2013, end: 20130610
  4. MEMANTINE [Suspect]
     Dosage: 20 MG
     Dates: start: 20130611

REACTIONS (3)
  - Convulsion [Not Recovered/Not Resolved]
  - Gait disturbance [Not Recovered/Not Resolved]
  - Blood creatine phosphokinase increased [Not Recovered/Not Resolved]
